FAERS Safety Report 4938705-6 (Version None)
Quarter: 2006Q1

REPORT INFORMATION
  Report Type: 
  Country: None (occurrence: None)
  Receive Date: 20060127
  Receipt Date: 20051212
  Transmission Date: 20060701
  Serious: Yes (Other)
  Sender: FDA-Public Use
  Company Number: 2005154190

PATIENT
  Age: 64 Year
  Sex: Female

DRUGS (1)
  1. LYRICA [Suspect]
     Indication: PAIN
     Dosage: 150 MG (75 MG, BID INTERVAL:  DAILY), ORAL
     Route: 048
     Dates: start: 20051121

REACTIONS (2)
  - HYPOMANIA [None]
  - PARALYSIS [None]
